FAERS Safety Report 25616892 (Version 1)
Quarter: 2025Q3

REPORT INFORMATION
  Report Type: Spontaneous
  Country: JP (occurrence: JP)
  Receive Date: 20250729
  Receipt Date: 20250729
  Transmission Date: 20251020
  Serious: Yes (Other)
  Sender: MERCK SHARP & DOHME LLC
  Company Number: JP-009507513-2313235

PATIENT
  Age: 77 Year
  Sex: Male

DRUGS (2)
  1. KEYTRUDA [Suspect]
     Active Substance: PEMBROLIZUMAB
     Indication: Transitional cell cancer of the renal pelvis and ureter
  2. ENFORTUMAB VEDOTIN [Suspect]
     Active Substance: ENFORTUMAB VEDOTIN
     Indication: Transitional cell cancer of the renal pelvis and ureter

REACTIONS (9)
  - Interstitial lung disease [Unknown]
  - Rash [Unknown]
  - Pyelonephritis [Unknown]
  - Pleurisy bacterial [Unknown]
  - Pneumonia fungal [Unknown]
  - Bronchopulmonary aspergillosis [Unknown]
  - Chest pain [Unknown]
  - Rash [Unknown]
  - Pneumonitis [Unknown]
